FAERS Safety Report 7075154-1 (Version None)
Quarter: 2010Q4

REPORT INFORMATION
  Report Type: 
  Country: None (occurrence: None)
  Receive Date: 20101029
  Receipt Date: 20100722
  Transmission Date: 20110411
  Serious: No
  Sender: FDA-Public Use
  Company Number: US-WYE-H15603110

PATIENT
  Sex: Female
  Weight: 11.35 kg

DRUGS (8)
  1. ALAVERT [Suspect]
     Indication: HYPERSENSITIVITY
     Route: 048
     Dates: start: 20091023, end: 20091107
  2. PULMICORT [Concomitant]
  3. FLOVENT [Concomitant]
  4. FLONASE [Concomitant]
  5. EPINEPHRINE [Concomitant]
  6. HYDROCORTISONE [Concomitant]
  7. BENADRYL [Concomitant]
  8. SALBUTAMOL [Concomitant]

REACTIONS (2)
  - CONSTIPATION [None]
  - DRUG INEFFECTIVE [None]
